FAERS Safety Report 4499730-5 (Version None)
Quarter: 2004Q4

REPORT INFORMATION
  Report Type: 
  Country: None (occurrence: None)
  Receive Date: 20041110
  Receipt Date: 20041110
  Transmission Date: 20050328
  Serious: Yes (Hospitalization)
  Sender: FDA-Public Use
  Company Number: None

PATIENT
  Age: 66 Year
  Sex: Male
  Weight: 73.9 kg

DRUGS (9)
  1. NAPROXEN [Suspect]
     Indication: INFLAMMATION
     Dosage: 375 MG, BID, ORAL
     Route: 048
     Dates: start: 20041013, end: 20041030
  2. NAPROXEN [Suspect]
     Indication: PAIN
     Dosage: 375 MG, BID, ORAL
     Route: 048
     Dates: start: 20041013, end: 20041030
  3. SIMVASTATIN [Concomitant]
  4. FUROSEMIDE [Concomitant]
  5. RANITIDINE HCL [Concomitant]
  6. ALLOPURINOL [Concomitant]
  7. SYNTHROID [Concomitant]
  8. LISINOPRIL [Concomitant]
  9. METOPROLOL TARTRATE [Concomitant]

REACTIONS (1)
  - DYSPNOEA [None]
